FAERS Safety Report 13844774 (Version 3)
Quarter: 2020Q1

REPORT INFORMATION
  Report Type: Spontaneous
  Country: US (occurrence: US)
  Receive Date: 20170808
  Receipt Date: 20200317
  Transmission Date: 20200409
  Serious: Yes (Hospitalization)
  Sender: FDA-Public Use
  Company Number: US-PFIZER INC-2017009804

PATIENT
  Age: 28 Year
  Sex: Female
  Weight: 89.8 kg

DRUGS (1)
  1. NARDIL [Suspect]
     Active Substance: PHENELZINE SULFATE
     Indication: DEPRESSION
     Dosage: 15 MG, 4X/DAY
     Route: 048
     Dates: start: 1973

REACTIONS (5)
  - Withdrawal syndrome [Unknown]
  - Headache [Not Recovered/Not Resolved]
  - Panic attack [Recovering/Resolving]
  - Therapeutic product effect delayed [Unknown]
  - Weight increased [Unknown]

NARRATIVE: CASE EVENT DATE: 1973
